FAERS Safety Report 10394011 (Version 1)
Quarter: 2014Q3

REPORT INFORMATION
  Report Type: Spontaneous
  Country: US (occurrence: US)
  Receive Date: 20140819
  Receipt Date: 20140819
  Transmission Date: 20150326
  Serious: No
  Sender: FDA-Public Use
  Company Number: US-PFIZER INC-2014230498

PATIENT
  Age: 46 Year
  Sex: Male
  Weight: 88.45 kg

DRUGS (1)
  1. MOTRIN [Suspect]
     Active Substance: IBUPROFEN
     Indication: MIGRAINE
     Dosage: 2 CAPLETS AS DIRECTED
     Route: 048

REACTIONS (1)
  - Hypersensitivity [Recovered/Resolved]
